FAERS Safety Report 7657808-9 (Version None)
Quarter: 2011Q3

REPORT INFORMATION
  Report Type: 
  Country: None (occurrence: None)
  Receive Date: 20110805
  Receipt Date: 20090218
  Transmission Date: 20111222
  Serious: No
  Sender: FDA-Public Use
  Company Number: US-BIOGENIDEC-2009BI005271

PATIENT
  Age: 45 Year
  Sex: Female

DRUGS (4)
  1. TYSABRI [Suspect]
     Route: 042
     Dates: start: 20080317
  2. ARICEPT [Concomitant]
     Indication: MENTAL IMPAIRMENT
  3. TYSABRI [Suspect]
     Indication: MULTIPLE SCLEROSIS
     Route: 042
     Dates: start: 20061101, end: 20071220
  4. NAMENDA [Concomitant]
     Indication: MENTAL IMPAIRMENT

REACTIONS (2)
  - VITAMIN B12 DEFICIENCY [None]
  - MULTIPLE SCLEROSIS RELAPSE [None]
